FAERS Safety Report 14738051 (Version 9)
Quarter: 2018Q4

REPORT INFORMATION
  Report Type: Spontaneous
  Country: FR (occurrence: FR)
  Receive Date: 20180409
  Receipt Date: 20181114
  Transmission Date: 20190204
  Serious: Yes (Hospitalization, Disabling, Other)
  Sender: FDA-Public Use
  Company Number: FR-PFIZER INC-2018138491

PATIENT
  Age: 41 Year
  Sex: Male
  Weight: 78 kg

DRUGS (2)
  1. ARTOTEC [Suspect]
     Active Substance: DICLOFENAC SODIUM\MISOPROSTOL
     Indication: JOINT INJURY
     Dosage: 1 DF, DAILY
     Dates: start: 20120116
  2. DAFALGAN CODEINE [Concomitant]
     Active Substance: ACETAMINOPHEN\CODEINE PHOSPHATE
     Indication: JOINT INJURY
     Dosage: 2 DF, DAILY

REACTIONS (3)
  - Hypoxia [Recovered/Resolved]
  - Renal failure [Recovered/Resolved]
  - Necrotising fasciitis [Unknown]

NARRATIVE: CASE EVENT DATE: 201201
